FAERS Safety Report 11767105 (Version 1)
Quarter: 2015Q4

REPORT INFORMATION
  Report Type: Spontaneous
  Country: US (occurrence: None)
  Receive Date: 20151120
  Receipt Date: 20151120
  Transmission Date: 20160304
  Serious: Yes (Life-Threatening, Other)
  Sender: FDA-Public Use
  Company Number: None

PATIENT
  Age: 33 Year
  Sex: Female
  Weight: 108.86 kg

DRUGS (1)
  1. MIRENA [Suspect]
     Active Substance: LEVONORGESTREL
     Indication: CONTRACEPTION
     Dates: start: 20100501, end: 20150501

REACTIONS (5)
  - Surgical procedure repeated [None]
  - Complication of device removal [None]
  - Device expulsion [None]
  - Device breakage [None]
  - Embedded device [None]

NARRATIVE: CASE EVENT DATE: 20151002
